FAERS Safety Report 5801990-2 (Version None)
Quarter: 2008Q3

REPORT INFORMATION
  Report Type: 
  Country: None (occurrence: None)
  Receive Date: 20080707
  Receipt Date: 20080627
  Transmission Date: 20090109
  Serious: Yes (Hospitalization)
  Sender: FDA-Public Use
  Company Number: CH-ROCHE-566333

PATIENT
  Sex: Female
  Weight: 57 kg

DRUGS (1)
  1. BONIVA [Suspect]
     Indication: DRUG USE FOR UNKNOWN INDICATION
     Dosage: FORM: VIAL, DOSAGE REGIMEN REPORTED AS: 3 MG.
     Route: 042
     Dates: start: 20070404, end: 20070627

REACTIONS (1)
  - HYPERTENSION [None]
